FAERS Safety Report 10878592 (Version 1)
Quarter: 2015Q1

REPORT INFORMATION
  Report Type: Spontaneous
  Country: AT (occurrence: AT)
  Receive Date: 20150302
  Receipt Date: 20150302
  Transmission Date: 20150721
  Serious: Yes (Other)
  Sender: FDA-Public Use
  Company Number: AT-TEVA-544140ISR

PATIENT
  Age: 78 Year
  Sex: Male

DRUGS (2)
  1. PANTOPRAZOL RATIOPHARM GMBH 40MG MAGENRESISTENE TABLETTEN [Suspect]
     Active Substance: PANTOPRAZOLE MAGNESIUM
     Dosage: 40 MILLIGRAM DAILY;
  2. PANTOPRAZOL RATIOPHARM GMBH 40MG MAGENRESISTENE TABLETTEN [Suspect]
     Active Substance: PANTOPRAZOLE MAGNESIUM
     Dosage: 80 MILLIGRAM DAILY;

REACTIONS (2)
  - VIth nerve paralysis [Recovered/Resolved]
  - Diplopia [Recovered/Resolved]
